FAERS Safety Report 19364027 (Version 2)
Quarter: 2021Q2

REPORT INFORMATION
  Report Type: Spontaneous
  Country: FR (occurrence: FR)
  Receive Date: 20210603
  Receipt Date: 20210611
  Transmission Date: 20210717
  Serious: Yes (Life-Threatening, Hospitalization, Other)
  Sender: FDA-Public Use
  Company Number: FR-CADILA HEALTHCARE LIMITED-FR-ZYDUS-065062

PATIENT

DRUGS (2)
  1. ATENOLOL. [Suspect]
     Active Substance: ATENOLOL
     Indication: PRODUCT USED FOR UNKNOWN INDICATION
     Dosage: 90 DOSAGE FORM
     Route: 048
  2. AMLODIPINE [Suspect]
     Active Substance: AMLODIPINE BESYLATE
     Indication: PRODUCT USED FOR UNKNOWN INDICATION
     Dosage: 90 DOSAGE FORM
     Route: 048

REACTIONS (5)
  - Intentional overdose [Recovering/Resolving]
  - Toxicity to various agents [Recovered/Resolved]
  - Vasogenic cerebral oedema [Unknown]
  - Shock [Unknown]
  - Atrioventricular block first degree [Unknown]
